FAERS Safety Report 6166862-5 (Version None)
Quarter: 2009Q2

REPORT INFORMATION
  Report Type: 
  Country: None (occurrence: None)
  Receive Date: 20090424
  Receipt Date: 20090417
  Transmission Date: 20091009
  Serious: Yes (Life-Threatening, Hospitalization, Disabling)
  Sender: FDA-Public Use
  Company Number: A0779205A

PATIENT
  Age: 9 Month
  Sex: Female

DRUGS (5)
  1. FLOLAN [Suspect]
     Indication: DRUG USE FOR UNKNOWN INDICATION
     Dosage: .18MG CONTINUOUS
     Route: 042
     Dates: start: 20081216
  2. UNKNOWN [Concomitant]
  3. REGLAN [Concomitant]
  4. AMPICILLIN [Concomitant]
  5. LEVOTHYROXINE [Concomitant]

REACTIONS (1)
  - CARDIAC ARREST [None]
